FAERS Safety Report 10256315 (Version 1)
Quarter: 2014Q2

REPORT INFORMATION
  Report Type: Report from Study
  Country: RU (occurrence: RU)
  Receive Date: 20140624
  Receipt Date: 20140624
  Transmission Date: 20141212
  Serious: Yes (Hospitalization)
  Sender: FDA-Public Use
  Company Number: RU-JNJFOC-20121001792

PATIENT
  Age: 55 Year
  Sex: Male
  Weight: 97 kg

DRUGS (9)
  1. XARELTO [Suspect]
     Indication: HIP ARTHROPLASTY
     Route: 048
     Dates: start: 20120419, end: 20120513
  2. XARELTO [Suspect]
     Indication: THROMBOSIS PROPHYLAXIS
     Route: 048
     Dates: start: 20120419, end: 20120513
  3. THROMBO ASS [Concomitant]
     Indication: MYOCARDIAL ISCHAEMIA
     Dates: start: 20120417, end: 20120419
  4. KETOROLAC TROMETHAMINE [Concomitant]
     Indication: ANAESTHESIA
     Route: 030
     Dates: start: 20120419, end: 20120425
  5. ATARAX [Concomitant]
     Indication: PREMEDICATION
     Dates: start: 20120418, end: 20120418
  6. CEFTRIAXONE [Concomitant]
     Indication: INFECTION PROPHYLAXIS
     Route: 030
     Dates: start: 20120419, end: 20120421
  7. CONCOR [Concomitant]
     Indication: HYPERTENSION
     Route: 048
     Dates: start: 20120417
  8. CONCOR [Concomitant]
     Indication: MYOCARDIAL ISCHAEMIA
     Route: 048
     Dates: start: 20120417
  9. PRESTARIUM [Concomitant]
     Indication: MYOCARDIAL ISCHAEMIA
     Route: 048
     Dates: start: 20120417

REACTIONS (1)
  - Transient ischaemic attack [Recovered/Resolved]
